FAERS Safety Report 21174928 (Version 1)
Quarter: 2022Q3

REPORT INFORMATION
  Report Type: Spontaneous
  Country: US (occurrence: US)
  Receive Date: 20220805
  Receipt Date: 20220805
  Transmission Date: 20221027
  Serious: Yes (Other)
  Sender: FDA-Public Use
  Company Number: US-Accord-265595

PATIENT
  Age: 53 Year
  Sex: Female
  Weight: 90.72 kg

DRUGS (10)
  1. DOCETAXEL [Suspect]
     Active Substance: DOCETAXEL
     Indication: Breast cancer
     Dates: start: 20151130, end: 20160322
  2. PARAPLATIN [Suspect]
     Active Substance: CARBOPLATIN
     Indication: Breast cancer
  3. HERCEPTIN [Suspect]
     Active Substance: TRASTUZUMAB
     Indication: Breast cancer
  4. PERJETA [Suspect]
     Active Substance: PERTUZUMAB
     Indication: Breast cancer
  5. VITAMINS [Concomitant]
     Active Substance: VITAMINS
     Dates: start: 2009
  6. MELATONIN [Concomitant]
     Active Substance: MELATONIN
     Dates: start: 2009
  7. MIRTAZAPINE [Concomitant]
     Active Substance: MIRTAZAPINE
     Dates: start: 2009
  8. ARIPIPRAZOLE [Concomitant]
     Active Substance: ARIPIPRAZOLE
     Dates: start: 2009
  9. BUPROPION [Concomitant]
     Active Substance: BUPROPION
     Dates: start: 2009
  10. LORAZEPAM [Concomitant]
     Active Substance: LORAZEPAM
     Dates: start: 2009

REACTIONS (1)
  - Alopecia [Not Recovered/Not Resolved]

NARRATIVE: CASE EVENT DATE: 20160101
